FAERS Safety Report 7020548-3 (Version None)
Quarter: 2010Q3

REPORT INFORMATION
  Report Type: 
  Country: None (occurrence: None)
  Receive Date: 20100929
  Receipt Date: 20100924
  Transmission Date: 20110219
  Serious: Yes (Other)
  Sender: FDA-Public Use
  Company Number: FR-SANOFI-AVENTIS-2010SA057365

PATIENT
  Age: 40 Year
  Sex: Female

DRUGS (16)
  1. ZOLPIDEM TARTRATE [Suspect]
     Route: 048
     Dates: start: 20100614
  2. LYSODREN [Suspect]
     Indication: ADRENOCORTICAL CARCINOMA
     Route: 048
     Dates: start: 20100604, end: 20100617
  3. LYSODREN [Suspect]
     Route: 048
     Dates: start: 20100618, end: 20100623
  4. PARACETAMOL [Suspect]
     Route: 048
     Dates: start: 20100614, end: 20100618
  5. EUPANTOL [Suspect]
     Route: 048
     Dates: start: 20100614
  6. ZOFRAN [Suspect]
     Route: 048
     Dates: start: 20100614
  7. LEXOMIL [Suspect]
     Route: 048
     Dates: start: 20100614
  8. HYDROCORTISONE [Suspect]
     Route: 048
     Dates: start: 20100614
  9. ULTRA-LEVURE [Suspect]
     Route: 048
     Dates: start: 20100614
  10. LOVENOX [Concomitant]
     Route: 058
     Dates: start: 20100602, end: 20100614
  11. TINZAPARIN SODIUM [Concomitant]
     Route: 058
     Dates: start: 20100615
  12. AMOXICILLIN AND CLAVULANATE POTASSIUM [Concomitant]
     Route: 048
     Dates: start: 20100614, end: 20100616
  13. AMOXICILLIN AND CLAVULANATE POTASSIUM [Concomitant]
     Route: 048
     Dates: start: 20100617, end: 20100621
  14. SPASFON [Concomitant]
     Route: 048
     Dates: start: 20100614, end: 20100621
  15. PRIMPERAN TAB [Concomitant]
     Route: 048
     Dates: start: 20100618
  16. TRIMEBUTINE [Concomitant]
     Route: 048
     Dates: start: 20100618

REACTIONS (7)
  - ALANINE AMINOTRANSFERASE INCREASED [None]
  - ASPARTATE AMINOTRANSFERASE INCREASED [None]
  - BLOOD ALKALINE PHOSPHATASE INCREASED [None]
  - BLOOD LACTATE DEHYDROGENASE INCREASED [None]
  - CONDITION AGGRAVATED [None]
  - CYTOLYTIC HEPATITIS [None]
  - GAMMA-GLUTAMYLTRANSFERASE INCREASED [None]
